FAERS Safety Report 22188503 (Version 1)
Quarter: 2023Q2

REPORT INFORMATION
  Report Type: Spontaneous
  Country: US (occurrence: US)
  Receive Date: 20230409
  Receipt Date: 20230409
  Transmission Date: 20230721
  Serious: No
  Sender: FDA-Public Use
  Company Number: US-TEVA-2023-US-2871782

PATIENT
  Age: 56 Year
  Sex: Female

DRUGS (2)
  1. GABAPENTIN [Suspect]
     Active Substance: GABAPENTIN
     Indication: Product used for unknown indication
     Dosage: 600 MILLIGRAM DAILY;
     Route: 065
  2. GABAPENTIN [Suspect]
     Active Substance: GABAPENTIN
     Dosage: 600 MILLIGRAM DAILY; INCREASE HER NIGHTLY DOSE TO 400MG
     Route: 065

REACTIONS (2)
  - Blood urine present [Unknown]
  - Therapy change [Not Recovered/Not Resolved]

NARRATIVE: CASE EVENT DATE: 20230301
